FAERS Safety Report 17261725 (Version 5)
Quarter: 2020Q2

REPORT INFORMATION
  Report Type: Spontaneous
  Country: US (occurrence: US)
  Receive Date: 20200113
  Receipt Date: 20200630
  Transmission Date: 20200713
  Serious: Yes (Other)
  Sender: FDA-Public Use
  Company Number: US-009507513-1912USA011935

PATIENT
  Age: 29 Year
  Sex: Female
  Weight: 80.27 kg

DRUGS (2)
  1. NEXPLANON [Suspect]
     Active Substance: ETONOGESTREL
     Dosage: 1 IMPLANT
     Route: 059
     Dates: start: 20191211
  2. NEXPLANON [Suspect]
     Active Substance: ETONOGESTREL
     Indication: CONTRACEPTION
     Dosage: 1 IMPLANT, DAILY, RIGHT ARM, OVER TRICEPS IN SUBDERMAL SPACE
     Route: 059
     Dates: start: 20190227, end: 20191211

REACTIONS (8)
  - Adverse event [Recovered/Resolved]
  - Device kink [Recovered/Resolved]
  - Menstrual disorder [Recovered/Resolved]
  - Wrong technique in device usage process [Unknown]
  - Implant site pain [Recovered/Resolved]
  - Implant site paraesthesia [Recovered/Resolved]
  - Open reduction of fracture [Unknown]
  - Inappropriate schedule of product administration [Unknown]

NARRATIVE: CASE EVENT DATE: 20190227
